FAERS Safety Report 16980649 (Version 1)
Quarter: 2019Q4

REPORT INFORMATION
  Report Type: Spontaneous
  Country: US (occurrence: US)
  Receive Date: 20191031
  Receipt Date: 20191031
  Transmission Date: 20200122
  Serious: No
  Sender: FDA-Public Use
  Company Number: US-PERRIGO-18US015009

PATIENT
  Sex: Female

DRUGS (1)
  1. UNISOM SLEEPTABS [Suspect]
     Active Substance: DOXYLAMINE SUCCINATE
     Indication: INSOMNIA
     Dosage: 12.5 MG, SINGLE
     Route: 048
     Dates: start: 201812, end: 201812

REACTIONS (5)
  - Drug ineffective [Unknown]
  - Dizziness [Unknown]
  - Energy increased [Unknown]
  - Poor quality sleep [Unknown]
  - Underdose [Recovered/Resolved]

NARRATIVE: CASE EVENT DATE: 201812
